FAERS Safety Report 5716361-7 (Version None)
Quarter: 2008Q2

REPORT INFORMATION
  Report Type: 
  Country: None (occurrence: None)
  Receive Date: 20080424
  Receipt Date: 20080416
  Transmission Date: 20081010
  Serious: Yes (Other)
  Sender: FDA-Public Use
  Company Number: US-ASTRAZENECA-2008UW07836

PATIENT
  Age: 62 Year
  Sex: Female

DRUGS (6)
  1. ARIMIDEX [Suspect]
     Indication: BREAST CANCER
     Route: 048
     Dates: start: 20070701
  2. PREVACID [Concomitant]
  3. DIOVAN [Concomitant]
  4. TOPROL-XL [Concomitant]
     Route: 048
  5. ZOLOFT [Concomitant]
  6. ZOCOR [Concomitant]

REACTIONS (13)
  - BURNING SENSATION [None]
  - CARPAL TUNNEL SYNDROME [None]
  - DEPRESSION [None]
  - DISTURBANCE IN ATTENTION [None]
  - FATIGUE [None]
  - HYPOAESTHESIA [None]
  - MEMORY IMPAIRMENT [None]
  - MUSCLE TIGHTNESS [None]
  - MUSCULOSKELETAL STIFFNESS [None]
  - NAUSEA [None]
  - PAIN IN EXTREMITY [None]
  - PARAESTHESIA [None]
  - PLANTAR FASCIITIS [None]
